FAERS Safety Report 21883865 (Version 2)
Quarter: 2023Q1

REPORT INFORMATION
  Report Type: Spontaneous
  Country: US (occurrence: US)
  Receive Date: 20230119
  Receipt Date: 20230126
  Transmission Date: 20230418
  Serious: No
  Sender: FDA-Public Use
  Company Number: US-MYLANLABS-2023M1003646

PATIENT
  Age: 67 Year
  Sex: Female

DRUGS (1)
  1. ROWASA [Suspect]
     Active Substance: MESALAMINE
     Indication: Ear disorder
     Dosage: UNK
     Route: 065
     Dates: start: 20230101

REACTIONS (3)
  - Off label use [Unknown]
  - Product colour issue [Unknown]
  - Product packaging issue [Unknown]

NARRATIVE: CASE EVENT DATE: 20230101
